FAERS Safety Report 24675633 (Version 1)
Quarter: 2024Q4

REPORT INFORMATION
  Report Type: Spontaneous
  Country: PL (occurrence: PL)
  Receive Date: 20241128
  Receipt Date: 20241128
  Transmission Date: 20250115
  Serious: Yes (Other)
  Sender: PURDUE
  Company Number: PL-PURDUE-USA-2024-0313578

PATIENT
  Age: 55 Year
  Sex: Male

DRUGS (6)
  1. DRONABINOL [Interacting]
     Active Substance: DRONABINOL
     Indication: Neuralgia
     Dosage: UNK
     Route: 048
  2. CANNABIDIOL [Interacting]
     Active Substance: CANNABIDIOL
     Indication: Neuralgia
     Dosage: UNK
     Route: 065
  3. CANNABIS SATIVA SUBSP. INDICA TOP [Interacting]
     Active Substance: CANNABIS SATIVA SUBSP. INDICA TOP
     Indication: Neuralgia
     Dosage: UNK
     Route: 065
  4. ARIPIPRAZOLE [Interacting]
     Active Substance: ARIPIPRAZOLE
     Indication: Product used for unknown indication
     Dosage: 30 MG/DAY
     Route: 065
  5. LIDOCAINE [Concomitant]
     Active Substance: LIDOCAINE
     Indication: Product used for unknown indication
     Dosage: UNK
     Route: 062
  6. PREGABALIN [Concomitant]
     Active Substance: PREGABALIN
     Indication: Product used for unknown indication
     Dosage: UNK
     Route: 065

REACTIONS (4)
  - Ventricular tachycardia [Unknown]
  - Electrocardiogram QT prolonged [Unknown]
  - Drug interaction [Unknown]
  - Product use in unapproved indication [Unknown]
